FAERS Safety Report 8616188-2 (Version None)
Quarter: 2012Q3

REPORT INFORMATION
  Report Type: 
  Country: None (occurrence: None)
  Receive Date: 20120823
  Receipt Date: 20120810
  Transmission Date: 20120928
  Serious: Yes (Hospitalization, Other)
  Sender: FDA-Public Use
  Company Number: AT-CELGENEUS-009-21880-12062564

PATIENT
  Age: 82 Year
  Sex: Female
  Weight: 50 kg

DRUGS (18)
  1. DIABETEX [Concomitant]
     Route: 065
  2. LASIX [Concomitant]
     Route: 058
  3. EZETIMIBE [Concomitant]
     Route: 065
  4. PANTOPRAZOLE SODIUM [Concomitant]
     Route: 065
  5. LEVOTHYROXINE SODIUM [Concomitant]
     Route: 065
  6. ALDACTONE [Concomitant]
     Route: 065
  7. DEXAMETHASONE [Concomitant]
     Route: 065
  8. ARICEPT [Concomitant]
     Route: 065
  9. UROSIN [Concomitant]
     Route: 065
  10. INKONTAN [Concomitant]
     Route: 065
  11. LOVENOX [Concomitant]
     Route: 058
  12. AMLODIPINE [Concomitant]
     Route: 065
  13. REVLIMID [Suspect]
     Dosage: 5 MILLIGRAM
     Route: 048
     Dates: start: 20120430
  14. REVLIMID [Suspect]
     Route: 048
     Dates: start: 20120604, end: 20120614
  15. REVLIMID [Suspect]
     Dosage: 5 MILLIGRAM
     Route: 048
     Dates: start: 20120326
  16. TRAZODONE HCL [Concomitant]
     Route: 065
  17. TRAMADOL HYDROCHLORIDE [Concomitant]
     Route: 065
  18. MOLAXOLE [Concomitant]
     Route: 065

REACTIONS (4)
  - THROMBOCYTOPENIA [None]
  - AUTOIMMUNE THROMBOCYTOPENIA [None]
  - ASCITES [None]
  - ANAEMIA HAEMOLYTIC AUTOIMMUNE [None]
